FAERS Safety Report 19104197 (Version 2)
Quarter: 2021Q2

REPORT INFORMATION
  Report Type: Report from Study
  Country: US (occurrence: US)
  Receive Date: 20210407
  Receipt Date: 20210420
  Transmission Date: 20210717
  Serious: No
  Sender: FDA-Public Use
  Company Number: US-BIOVITRUM-2021US2756

PATIENT
  Sex: Male

DRUGS (1)
  1. KINERET [Suspect]
     Active Substance: ANAKINRA
     Indication: RHEUMATOID ARTHRITIS
     Route: 058
     Dates: start: 20210223, end: 20210323

REACTIONS (6)
  - Sinus headache [Unknown]
  - Abdominal pain upper [Unknown]
  - Sinusitis [Unknown]
  - Injection site rash [Unknown]
  - Headache [Unknown]
  - Rash [Unknown]
